FAERS Safety Report 24457019 (Version 1)
Quarter: 2024Q4

REPORT INFORMATION
  Report Type: Spontaneous
  Country: US (occurrence: US)
  Receive Date: 20241018
  Receipt Date: 20241018
  Transmission Date: 20250115
  Serious: No
  Sender: SANDOZ
  Company Number: US-SANDOZ-SDZ2024US087288

PATIENT
  Sex: Male

DRUGS (1)
  1. CIPROFLOXACIN [Suspect]
     Active Substance: CIPROFLOXACIN
     Indication: Ear infection bacterial
     Route: 065

REACTIONS (4)
  - Headache [Unknown]
  - Vision blurred [Unknown]
  - Eye pain [Unknown]
  - Heart rate increased [Unknown]
